FAERS Safety Report 4943585-9 (Version None)
Quarter: 2006Q1

REPORT INFORMATION
  Report Type: 
  Country: None (occurrence: None)
  Receive Date: 20060314
  Receipt Date: 20050512
  Transmission Date: 20060701
  Serious: Yes (Death, Hospitalization, Disabling)
  Sender: FDA-Public Use
  Company Number: ZW-GILEAD-2005-0008336

PATIENT
  Sex: Male

DRUGS (2)
  1. TENOFOVIR DISOPROXIL FUMARATE [Suspect]
     Indication: HIV INFECTION
     Dates: start: 20031114, end: 20031128
  2. COMBIVIR [Suspect]
     Indication: HIV INFECTION
     Dates: start: 20031114, end: 20031128

REACTIONS (5)
  - ANAEMIA [None]
  - CONFUSIONAL STATE [None]
  - DYSPNOEA [None]
  - HEPATOMEGALY [None]
  - RENAL FAILURE [None]
